FAERS Safety Report 7666470-0 (Version None)
Quarter: 2011Q3

REPORT INFORMATION
  Report Type: 
  Country: None (occurrence: None)
  Receive Date: 20110806
  Receipt Date: 20110713
  Transmission Date: 20111222
  Serious: No
  Sender: FDA-Public Use
  Company Number: US-ABBOTT-11P-163-0838505-00

PATIENT
  Sex: Female
  Weight: 90.8 kg

DRUGS (11)
  1. LISINOPRIL [Concomitant]
     Indication: HYPERTENSION
  2. LASIX [Concomitant]
     Indication: OEDEMA
  3. NEXIUM [Concomitant]
     Indication: GASTROOESOPHAGEAL REFLUX DISEASE
  4. POTASSIUM CHLORIDE [Concomitant]
     Indication: MINERAL SUPPLEMENTATION
  5. MULTI-VITAMIN [Concomitant]
     Indication: VITAMIN SUPPLEMENTATION
  6. ASCORBIC ACID [Concomitant]
     Indication: VITAMIN SUPPLEMENTATION
  7. GABASPAIN [Concomitant]
     Indication: FIBROMYALGIA
  8. VITAMIN B-12 [Concomitant]
     Indication: VITAMIN SUPPLEMENTATION
  9. NIASPAN [Suspect]
     Indication: BLOOD TRIGLYCERIDES INCREASED
     Dosage: 500 MG DAILY DOSE
     Dates: start: 20110624
  10. AMITIZA [Concomitant]
     Indication: IRRITABLE BOWEL SYNDROME
  11. FLEXERIL [Concomitant]
     Indication: FIBROMYALGIA

REACTIONS (4)
  - DEFAECATION URGENCY [None]
  - OEDEMA PERIPHERAL [None]
  - MIGRAINE [None]
  - NAUSEA [None]
